FAERS Safety Report 9869963 (Version 1)
Quarter: 2014Q1

REPORT INFORMATION
  Report Type: Spontaneous
  Country: IT (occurrence: None)
  Receive Date: 20140131
  Receipt Date: 20140131
  Transmission Date: 20141002
  Serious: Yes (Other)
  Sender: FDA-Public Use
  Company Number: 2014P100563

PATIENT
  Age: 4 Year
  Sex: 0
  Weight: 19 kg

DRUGS (7)
  1. PHENYLEPHRINE [Suspect]
     Indication: PUPIL DILATION PROCEDURE
     Route: 047
  2. DESFLURANE [Concomitant]
  3. REMIFENTANIL [Concomitant]
  4. TROPICAMIDE [Concomitant]
  5. DEXAMETHASONE [Concomitant]
  6. TRAMADOL [Concomitant]
  7. ACETAMINOPHEN [Concomitant]

REACTIONS (4)
  - Hypertension [None]
  - Bradycardia [None]
  - Ejection fraction decreased [None]
  - Pulmonary arterial pressure increased [None]
